FAERS Safety Report 21035152 (Version 2)
Quarter: 2023Q2

REPORT INFORMATION
  Report Type: Spontaneous
  Country: US (occurrence: US)
  Receive Date: 20220701
  Receipt Date: 20230516
  Transmission Date: 20230722
  Serious: No
  Sender: FDA-Public Use
  Company Number: US-JNJFOC-20220656525

PATIENT
  Age: 29 Year
  Sex: Female

DRUGS (1)
  1. ELMIRON [Suspect]
     Active Substance: PENTOSAN POLYSULFATE SODIUM
     Indication: Cystitis interstitial
     Route: 048
     Dates: start: 200601, end: 201801

REACTIONS (6)
  - Delayed dark adaptation [Unknown]
  - Vision blurred [Unknown]
  - Photophobia [Unknown]
  - Visual impairment [Unknown]
  - Intraocular pressure increased [Unknown]
  - Off label use [Unknown]

NARRATIVE: CASE EVENT DATE: 20060101
